FAERS Safety Report 4476669-2 (Version None)
Quarter: 2004Q4

REPORT INFORMATION
  Report Type: 
  Country: None (occurrence: None)
  Receive Date: 20041015
  Receipt Date: 20041015
  Transmission Date: 20050328
  Serious: No
  Sender: FDA-Public Use
  Company Number: None

PATIENT
  Sex: Female

DRUGS (5)
  1. MORPHINE SULFATE [Suspect]
     Indication: PAIN
     Dosage: 30 MG PO TID
     Route: 048
     Dates: start: 20040701
  2. TRANSDERM SCOP [Concomitant]
  3. SYNTHROID [Concomitant]
  4. NEURONTIN [Concomitant]
  5. KETOPROFEN [Concomitant]

REACTIONS (2)
  - DRUG EFFECT DECREASED [None]
  - PHARMACEUTICAL PRODUCT COMPLAINT [None]
